FAERS Safety Report 15464976 (Version 1)
Quarter: 2018Q4

REPORT INFORMATION
  Report Type: Spontaneous
  Country: US (occurrence: US)
  Receive Date: 20181004
  Receipt Date: 20181004
  Transmission Date: 20190204
  Serious: No
  Sender: FDA-Public Use
  Company Number: US-FRESENIUS MEDICAL CARE RENAL THERAPIES GROUP-FMC-1810-001765

PATIENT
  Sex: Male

DRUGS (1)
  1. DELFLEX [Suspect]
     Active Substance: CALCIUM CHLORIDE\DEXTROSE\MAGNESIUM CHLORIDE\SODIUM CHLORIDE\SODIUM LACTATE
     Indication: END STAGE RENAL DISEASE
     Dosage: TREATMENT REGIMEN INCLUDES TIDAL BASED THERAPY WITH 3 EXCHANGES OF 2000ML AND A LAST FILL OF 500ML.
     Route: 033

REACTIONS (2)
  - Dyspnoea [Recovered/Resolved]
  - Abdominal distension [Recovered/Resolved]
